FAERS Safety Report 7163265-1 (Version None)
Quarter: 2010Q4

REPORT INFORMATION
  Report Type: 
  Country: None (occurrence: None)
  Receive Date: 20101215
  Receipt Date: 20091222
  Transmission Date: 20110411
  Serious: No
  Sender: FDA-Public Use
  Company Number: US-ABBOTT-09P-163-0616622-00

PATIENT
  Sex: Male

DRUGS (2)
  1. HYTRIN [Suspect]
     Indication: NOCTURIA
     Dosage: GENERIC MEDICATION, BUT UNKNOWN MANUFACTURER.
     Route: 048
  2. HYTRIN [Suspect]
     Indication: PROSTATOMEGALY

REACTIONS (1)
  - PLATELET COUNT DECREASED [None]
